FAERS Safety Report 24424936 (Version 1)
Quarter: 2024Q4

REPORT INFORMATION
  Report Type: Spontaneous
  Country: EU (occurrence: EU)
  Receive Date: 20241010
  Receipt Date: 20241010
  Transmission Date: 20250114
  Serious: Yes (Hospitalization, Other)
  Sender: Harrow Health
  Company Number: EU-Santen Oy-2024-FRA-010534

PATIENT

DRUGS (5)
  1. CYCLOSPORINE [Suspect]
     Active Substance: CYCLOSPORINE
     Indication: Dry eye
     Dosage: ONE DROP IN EACH EYE EVERY DAY (IN THE EVENING) FOR 6 MONTHS
     Route: 047
     Dates: start: 20240725, end: 20240926
  2. CETALKONIUM\GLYCERIN\MINERAL OIL\POLOXAMER 188\TROMETHAMINE\TYLOXAPOL [Suspect]
     Active Substance: CETALKONIUM\GLYCERIN\MINERAL OIL\POLOXAMER 188\TROMETHAMINE\TYLOXAPOL
     Indication: Dry eye
     Dosage: ONE DROP IN EACH EYE TWICE A DAY
     Route: 065
     Dates: start: 20240725, end: 20240930
  3. TREHALOSE,HYALURONATE SODIUM [Concomitant]
     Indication: Product used for unknown indication
     Dosage: DURING THE DAY
     Route: 065
  4. HYALURONATE SODIUM [Concomitant]
     Active Substance: HYALURONATE SODIUM
     Indication: Product used for unknown indication
     Dosage: UNK
     Route: 065
  5. LEVOTHYROXINE SODIUM [Concomitant]
     Active Substance: LEVOTHYROXINE SODIUM
     Indication: Product used for unknown indication
     Dosage: 75 MICROGRAMS FOR OVER 20 YEARS
     Route: 065

REACTIONS (6)
  - Purpura [Recovering/Resolving]
  - Thrombocytopenia [Not Recovered/Not Resolved]
  - Eye irritation [Recovered/Resolved]
  - Ocular hyperaemia [Not Recovered/Not Resolved]
  - Erythema of eyelid [Not Recovered/Not Resolved]
  - Eyelids pruritus [Not Recovered/Not Resolved]

NARRATIVE: CASE EVENT DATE: 20240101
